FAERS Safety Report 13654608 (Version 6)
Quarter: 2017Q4

REPORT INFORMATION
  Report Type: Report from Study
  Country: RS (occurrence: RS)
  Receive Date: 20170615
  Receipt Date: 20171106
  Transmission Date: 20180320
  Serious: Yes (Hospitalization)
  Sender: FDA-Public Use
  Company Number: RS-ROCHE-1727643

PATIENT
  Age: 45 Year
  Sex: Male
  Weight: 68.2 kg

DRUGS (19)
  1. MITOXANTRONE [Concomitant]
     Active Substance: MITOXANTRONE HYDROCHLORIDE
     Route: 065
     Dates: start: 2000
  2. OCRELIZUMAB. [Suspect]
     Active Substance: OCRELIZUMAB
     Indication: RELAPSING-REMITTING MULTIPLE SCLEROSIS
     Dosage: MOST RECENT DOSE PRIOR TO FIRST OCCURRENCE OF URINARY INFECTION: 01/OCT/2015?AS PER PROTOCOL ONCE EV
     Route: 042
     Dates: start: 20151001
  3. KSALOL [Concomitant]
     Active Substance: ALPRAZOLAM
     Dosage: 3X1
     Route: 065
     Dates: start: 20150318
  4. SALINE [Concomitant]
     Active Substance: SODIUM CHLORIDE
     Route: 065
     Dates: start: 20170912, end: 20170912
  5. OCRELIZUMAB. [Suspect]
     Active Substance: OCRELIZUMAB
     Dosage: MOST RECENT DOSE PRIOR TO SECOND OCCURRENCE OF URINARY INFECTION: 02/MAR/2017?AS PER PROTOCOL ONCE E
     Route: 042
     Dates: start: 20170302
  6. PARACETAMOL [Concomitant]
     Active Substance: ACETAMINOPHEN
     Route: 065
     Dates: start: 20140311
  7. OCRELIZUMAB. [Suspect]
     Active Substance: OCRELIZUMAB
     Indication: RELAPSING-REMITTING MULTIPLE SCLEROSIS
     Dosage: ON DAY 1 AND DAY 15 OF EVERY 24 WEEK CYCLE (AS SPECIFIED IN PROTOCOL)
     Route: 042
     Dates: start: 20090326, end: 20100813
  8. LEMOD SOLU [Concomitant]
     Active Substance: METHYLPREDNISOLONE SODIUM SUCCINATE
     Dosage: FOR FIVE DAYS
     Route: 065
  9. MELATONIN [Concomitant]
     Active Substance: MELATONIN
     Dosage: 0+0+1
     Route: 065
  10. VALPROIC ACID. [Concomitant]
     Active Substance: VALPROIC ACID
     Route: 065
     Dates: start: 20141104, end: 20170518
  11. SALINE [Concomitant]
     Active Substance: SODIUM CHLORIDE
     Route: 065
     Dates: start: 20160317, end: 20160321
  12. METHYLPREDNISOLONE. [Concomitant]
     Active Substance: METHYLPREDNISOLONE
     Route: 065
     Dates: start: 20160321, end: 20160322
  13. METHYLPREDNISOLONE. [Concomitant]
     Active Substance: METHYLPREDNISOLONE
     Route: 065
     Dates: start: 20160323, end: 20160325
  14. RANITIDINE. [Concomitant]
     Active Substance: RANITIDINE
     Route: 065
     Dates: start: 20160321, end: 20160325
  15. TIENAM [Concomitant]
     Active Substance: CILASTATIN SODIUM\IMIPENEM
     Route: 065
     Dates: start: 20160317, end: 20160324
  16. OLIGOGAL SE [Concomitant]
     Dosage: 1X1
     Route: 065
  17. SALINE [Concomitant]
     Active Substance: SODIUM CHLORIDE
     Route: 065
     Dates: start: 20160322, end: 20160325
  18. ZOLOFT [Concomitant]
     Active Substance: SERTRALINE HYDROCHLORIDE
     Dosage: 1+0+0
     Route: 065
     Dates: start: 20150601
  19. CHOLECALCIFEROL [Concomitant]
     Active Substance: CHOLECALCIFEROL
     Route: 065
     Dates: start: 20150610

REACTIONS (2)
  - Urinary tract infection [Recovered/Resolved]
  - Urinary tract infection [Recovered/Resolved]

NARRATIVE: CASE EVENT DATE: 20160304
